FAERS Safety Report 14419831 (Version 1)
Quarter: 2018Q1

REPORT INFORMATION
  Report Type: Spontaneous
  Country: US (occurrence: US)
  Receive Date: 20180122
  Receipt Date: 20180122
  Transmission Date: 20180509
  Serious: Yes (Hospitalization, Other)
  Sender: FDA-Public Use
  Company Number: US-IMPAX LABORATORIES, INC-2018-IPXL-00146

PATIENT
  Age: 85 Year
  Sex: Female

DRUGS (6)
  1. PROPRANOLOL HYDROCHLORIDE IR [Suspect]
     Active Substance: PROPRANOLOL HYDROCHLORIDE
     Dosage: REDUCED DOSES, UNK
     Route: 065
  2. PROPYLTHIOURACIL. [Suspect]
     Active Substance: PROPYLTHIOURACIL
     Indication: HYPERTHYROIDISM
     Dosage: 200 MG, EVERY 8HR
     Route: 048
  3. PROPYLTHIOURACIL. [Suspect]
     Active Substance: PROPYLTHIOURACIL
     Dosage: INCREASED DOSE, UNK
     Route: 065
  4. AMPICILLIN [Suspect]
     Active Substance: AMPICILLIN
     Indication: PNEUMONIA
     Dosage: UNK
     Route: 065
  5. PROPRANOLOL HYDROCHLORIDE IR [Suspect]
     Active Substance: PROPRANOLOL HYDROCHLORIDE
     Dosage: 20 MG, EVERY 8HR
     Route: 048
  6. PROPRANOLOL HYDROCHLORIDE IR [Suspect]
     Active Substance: PROPRANOLOL HYDROCHLORIDE
     Indication: HEART RATE INCREASED
     Dosage: 1 MG (4 DOSES IN 18 HOURS), UNK
     Route: 042

REACTIONS (8)
  - Apnoea [Recovering/Resolving]
  - Bradycardia [Recovered/Resolved]
  - Peripheral ischaemia [Recovered/Resolved with Sequelae]
  - Hyperthyroidism [Recovering/Resolving]
  - Hypotension [Recovered/Resolved]
  - Embolism arterial [Recovering/Resolving]
  - Circulatory collapse [Recovering/Resolving]
  - Drug ineffective for unapproved indication [Unknown]
